FAERS Safety Report 8905578 (Version 2)
Quarter: 2013Q4

REPORT INFORMATION
  Report Type: Spontaneous
  Country: US (occurrence: US)
  Receive Date: 20121113
  Receipt Date: 20131120
  Transmission Date: 20140711
  Serious: No
  Sender: FDA-Public Use
  Company Number: US-ASTRAZENECA-2012SE84879

PATIENT
  Age: 78 Year
  Sex: Female
  Weight: 70.3 kg

DRUGS (4)
  1. ARIMIDEX [Suspect]
     Indication: BREAST CANCER
     Route: 048
  2. OMEPRAZOLE OTC [Suspect]
     Indication: DYSPEPSIA
     Route: 048
  3. ATIVAN [Concomitant]
     Indication: SLEEP DISORDER
  4. NORTRIPTYLINE [Concomitant]
     Indication: SLEEP DISORDER

REACTIONS (3)
  - Glaucoma [Unknown]
  - Malaise [Unknown]
  - Intentional drug misuse [Unknown]
